FAERS Safety Report 6863937-X (Version None)
Quarter: 2010Q3

REPORT INFORMATION
  Report Type: 
  Country: None (occurrence: None)
  Receive Date: 20100720
  Receipt Date: 20100708
  Transmission Date: 20110219
  Serious: Yes (Death)
  Sender: FDA-Public Use
  Company Number: KV201000218

PATIENT
  Age: 26 Year
  Sex: Male

DRUGS (1)
  1. BUSPIRONE HYDROCHLORIDE [Suspect]
     Indication: PRODUCT USED FOR UNKNOWN INDICATION
     Dosage: ORAL
     Route: 048
     Dates: start: 20080506, end: 20081126

REACTIONS (3)
  - CARDIOMEGALY [None]
  - DILATATION VENTRICULAR [None]
  - LEFT VENTRICULAR HYPERTROPHY [None]
